FAERS Safety Report 7825640-9 (Version None)
Quarter: 2011Q4

REPORT INFORMATION
  Report Type: 
  Country: None (occurrence: None)
  Receive Date: 20111019
  Receipt Date: 20111007
  Transmission Date: 20120403
  Serious: Yes (Other)
  Sender: FDA-Public Use
  Company Number: US-BAYER-201032259NA

PATIENT
  Age: 59 Year
  Sex: Male
  Weight: 99.773 kg

DRUGS (32)
  1. OMNISCAN [Suspect]
     Indication: NUCLEAR MAGNETIC RESONANCE IMAGING
     Dosage: 20 ML, ONCE
     Route: 042
     Dates: start: 20060512, end: 20060512
  2. PREDNISONE [Concomitant]
  3. INDERAL [Concomitant]
  4. HECTOROL [Concomitant]
  5. VENOFER [Concomitant]
  6. PROHANCE [Suspect]
     Indication: NUCLEAR MAGNETIC RESONANCE IMAGING
  7. GADOLINIUM IN UNSPECIFIED DRUG [Suspect]
     Indication: ANGIOGRAM
     Dosage: UNK
     Dates: start: 20030703, end: 20030703
  8. GADOLINIUM IN UNSPECIFIED DRUG [Suspect]
     Dosage: UNK
     Dates: start: 20030711, end: 20030711
  9. NPH INSULIN [Concomitant]
  10. MAGNEVIST [Suspect]
     Indication: NUCLEAR MAGNETIC RESONANCE IMAGING
  11. OMNISCAN [Suspect]
     Indication: NUCLEAR MAGNETIC RESONANCE IMAGING BRAIN
     Dosage: 40 ML, ONCE
     Route: 042
     Dates: start: 20060330, end: 20060330
  12. GADOLINIUM IN UNSPECIFIED DRUG [Suspect]
     Dosage: UNK
     Dates: start: 20041229, end: 20041229
  13. NEPHROCAPS [Concomitant]
  14. ERGOCALCIFEROL [Concomitant]
  15. CARDIZEM [Concomitant]
  16. OPTIMARK [Suspect]
     Indication: NUCLEAR MAGNETIC RESONANCE IMAGING
  17. MULTIHANCE [Suspect]
     Indication: NUCLEAR MAGNETIC RESONANCE IMAGING
  18. PHOSLO [Concomitant]
  19. IRON SUPPLEMENT [Concomitant]
  20. MIDODRINE HYDROCHLORIDE [Concomitant]
  21. CARDURA [Concomitant]
  22. DIOVAN [Concomitant]
  23. ESOMEPRAZOLE SODIUM [Concomitant]
  24. ENBREL [Concomitant]
  25. GADOLINIUM IN UNSPECIFIED DRUG [Suspect]
     Indication: NUCLEAR MAGNETIC RESONANCE IMAGING BRAIN
     Dosage: UNK
     Dates: start: 19960906, end: 19960906
  26. QUININE [Concomitant]
  27. FLUCONAZOLE [Concomitant]
  28. FOSRENOL [Concomitant]
  29. EPOGEN [Concomitant]
  30. ACYCLOVIR [Concomitant]
  31. METOPROLOL TARTRATE [Concomitant]
  32. RYTHMOL [Concomitant]

REACTIONS (37)
  - PAIN [None]
  - MUSCULOSKELETAL STIFFNESS [None]
  - HYPOAESTHESIA [None]
  - HIP FRACTURE [None]
  - ERYTHEMA [None]
  - PROSTATE CANCER [None]
  - STASIS DERMATITIS [None]
  - ACTINIC KERATOSIS [None]
  - SKIN PLAQUE [None]
  - RENAL FAILURE ACUTE [None]
  - NEURALGIA [None]
  - SKIN TIGHTNESS [None]
  - GAIT DISTURBANCE [None]
  - SKIN INDURATION [None]
  - SCLERODERMA [None]
  - OSTEOARTHRITIS [None]
  - CARDIAC AMYLOIDOSIS [None]
  - GASTROINTESTINAL AMYLOIDOSIS [None]
  - VITAMIN B12 DECREASED [None]
  - NEPHROGENIC SYSTEMIC FIBROSIS [None]
  - SKIN HYPERPIGMENTATION [None]
  - RASH [None]
  - RENAL FAILURE CHRONIC [None]
  - HAEMODIALYSIS [None]
  - PSORIASIS [None]
  - RENAL AMYLOIDOSIS [None]
  - EMOTIONAL DISTRESS [None]
  - SECONDARY AMYLOIDOSIS [None]
  - PRURIGO [None]
  - MOBILITY DECREASED [None]
  - PLEURAL FIBROSIS [None]
  - ARTHRALGIA [None]
  - SUBCUTANEOUS NODULE [None]
  - FALL [None]
  - CALCIPHYLAXIS [None]
  - NEUROPATHY PERIPHERAL [None]
  - SEBORRHOEIC KERATOSIS [None]
